FAERS Safety Report 20903321 (Version 1)
Quarter: 2022Q2

REPORT INFORMATION
  Report Type: Report from Study
  Country: US (occurrence: US)
  Receive Date: 20220601
  Receipt Date: 20220601
  Transmission Date: 20220721
  Serious: Yes (Hospitalization)
  Sender: FDA-Public Use
  Company Number: US-ABBVIE-22K-163-4417734-00

PATIENT
  Sex: Male

DRUGS (2)
  1. VENCLEXTA [Suspect]
     Active Substance: VENETOCLAX
     Indication: Myeloproliferative neoplasm
     Route: 048
     Dates: start: 20220509, end: 20220518
  2. VENCLEXTA [Suspect]
     Active Substance: VENETOCLAX
     Dosage: BY MOUTH ONCE DAILY WITH FOOD AND GLASS FULL OF WATER
     Route: 048

REACTIONS (2)
  - Cellulitis [Unknown]
  - Pneumonia [Unknown]
